FAERS Safety Report 12080471 (Version 1)
Quarter: 2016Q1

REPORT INFORMATION
  Report Type: Spontaneous
  Country: US (occurrence: None)
  Receive Date: 20160212
  Receipt Date: 20160212
  Transmission Date: 20160526
  Serious: No
  Sender: FDA-Public Use
  Company Number: None

PATIENT
  Age: 47 Year
  Sex: Female
  Weight: 66.68 kg

DRUGS (9)
  1. MONTELUKASH [Concomitant]
  2. DAILY WOMEN VITAMIN [Concomitant]
  3. DESLORATADINE. [Concomitant]
     Active Substance: DESLORATADINE
  4. DOXYCYCLINE. [Concomitant]
     Active Substance: DOXYCYCLINE
  5. ASMANEX [Concomitant]
     Active Substance: MOMETASONE FUROATE
  6. FISH OIL CAPSULES [Concomitant]
  7. QNASL [Concomitant]
     Active Substance: BECLOMETHASONE DIPROPIONATE
  8. MIRVASO [Suspect]
     Active Substance: BRIMONIDINE TARTRATE
     Indication: ROSACEA
     Dosage: PEA SIZE AMOUNT APPLIED TO A SURFACE, USUALLY THE SKIN
     Dates: start: 20160202, end: 20160207
  9. FINACEA (FACE GEL FOR ROSACEA) [Concomitant]

REACTIONS (1)
  - Rosacea [None]

NARRATIVE: CASE EVENT DATE: 20160211
